FAERS Safety Report 11867727 (Version 7)
Quarter: 2016Q3

REPORT INFORMATION
  Report Type: Spontaneous
  Country: US (occurrence: US)
  Receive Date: 20151224
  Receipt Date: 20160728
  Transmission Date: 20161109
  Serious: Yes (Hospitalization, Other)
  Sender: FDA-Public Use
  Company Number: US-PFIZER INC-2015459926

PATIENT
  Age: 59 Year
  Sex: Female
  Weight: 76 kg

DRUGS (14)
  1. METFORMIN [Concomitant]
     Active Substance: METFORMIN HYDROCHLORIDE
     Dosage: 500 MG, 2X/DAY (IN MORNING)
     Route: 048
     Dates: start: 20150205
  2. ASPIRE [Concomitant]
     Dosage: 1 DF, DAILY (TAKES AT NIGHT)
     Dates: start: 20150205
  3. LYRICA [Suspect]
     Active Substance: PREGABALIN
     Indication: HEADACHE
     Dosage: 200 MG, 1X/DAY
     Route: 048
     Dates: start: 20160712
  4. METFORMIN [Concomitant]
     Active Substance: METFORMIN HYDROCHLORIDE
     Indication: DIABETES MELLITUS
     Dosage: 500 MG, 1X/DAY
     Route: 048
     Dates: start: 20120110
  5. LYRICA [Suspect]
     Active Substance: PREGABALIN
     Indication: SPINAL OSTEOARTHRITIS
     Dosage: 75 MG, UNK
  6. LISINOPRIL/HCTZ [Concomitant]
     Active Substance: HYDROCHLOROTHIAZIDE\LISINOPRIL
     Indication: BLOOD PRESSURE ABNORMAL
     Dosage: [LISINOPRIL 20MG]/[HCTZ 12.5MG], ONCE DAILY
     Route: 048
     Dates: start: 20111004
  7. DICLOFENAC SODIUM. [Concomitant]
     Active Substance: DICLOFENAC SODIUM
     Indication: ARTHROPATHY
     Dosage: 75MG ORALLY ONCE DAILY
     Route: 048
     Dates: start: 20150302
  8. CLOPIDOGREL [Concomitant]
     Active Substance: CLOPIDOGREL BISULFATE
     Dosage: 75 MG, 1X/DAY
     Route: 048
     Dates: start: 20160412
  9. LISINOPRIL/HCTZ [Concomitant]
     Active Substance: HYDROCHLOROTHIAZIDE\LISINOPRIL
     Dosage: 1 DF, 1X/DAY (LISINOPRIL 20 MG-HYDROCHLOROTHIAZIDE 12.5 MG)
     Route: 048
     Dates: start: 20160216
  10. DICLOFENAC SODIUM. [Concomitant]
     Active Substance: DICLOFENAC SODIUM
     Indication: ARTHRITIS
     Dosage: 75 MG, 2X/DAY
     Route: 048
     Dates: start: 20160624
  11. LYRICA [Suspect]
     Active Substance: PREGABALIN
     Indication: NECK PAIN
     Dosage: 1 DF, DAILY
     Route: 048
     Dates: start: 20151221
  12. LYRICA [Suspect]
     Active Substance: PREGABALIN
     Indication: HEADACHE
     Dosage: 200MG CAPSULE, ONE CAPSULE ONCE A DAY; AT NIGHT BEFORE BED
     Dates: start: 201201
  13. BABY ASPIRIN [Concomitant]
     Active Substance: ASPIRIN
     Indication: BLOOD VISCOSITY INCREASED
     Dosage: 81MG ORALLY TWO DAILY AT NIGHT
     Route: 048
     Dates: start: 2011
  14. CLOPIDOGREL [Concomitant]
     Active Substance: CLOPIDOGREL BISULFATE
     Indication: BLOOD VISCOSITY INCREASED
     Dosage: 75MG ORALLY ONCE DAILY
     Route: 048
     Dates: start: 20151115

REACTIONS (6)
  - Headache [Not Recovered/Not Resolved]
  - Ingrowing nail [Unknown]
  - Asthenopia [Unknown]
  - Product use issue [Not Recovered/Not Resolved]
  - Disease recurrence [Unknown]
  - Ischaemic stroke [Recovering/Resolving]

NARRATIVE: CASE EVENT DATE: 201201
